FAERS Safety Report 6638163-X (Version None)
Quarter: 2010Q1

REPORT INFORMATION
  Report Type: 
  Country: None (occurrence: None)
  Receive Date: 20100315
  Receipt Date: 20100315
  Transmission Date: 20100710
  Serious: Yes (Hospitalization)
  Sender: FDA-Public Use
  Company Number: None

PATIENT
  Age: 62 Year
  Sex: Male
  Weight: 93 kg

DRUGS (1)
  1. CARBAMAZEPINE [Suspect]
     Indication: SCHIZOAFFECTIVE DISORDER
     Dosage: 200 MG TID PO
     Route: 048
     Dates: start: 20090623, end: 20090704

REACTIONS (8)
  - DIZZINESS [None]
  - DRUG LEVEL DECREASED [None]
  - HYPONATRAEMIA [None]
  - INAPPROPRIATE ANTIDIURETIC HORMONE SECRETION [None]
  - POLYDIPSIA PSYCHOGENIC [None]
  - PYREXIA [None]
  - RHABDOMYOLYSIS [None]
  - VISUAL IMPAIRMENT [None]
